FAERS Safety Report 7383155-9 (Version None)
Quarter: 2011Q1

REPORT INFORMATION
  Report Type: 
  Country: None (occurrence: None)
  Receive Date: 20110325
  Receipt Date: 20110325
  Transmission Date: 20110831
  Serious: Yes (Hospitalization)
  Sender: FDA-Public Use
  Company Number: None

PATIENT
  Age: 39 Year
  Sex: Female
  Weight: 165.1 kg

DRUGS (8)
  1. ALLEGRA [Concomitant]
  2. LAMICTAL [Concomitant]
  3. LORAZEPAM [Concomitant]
  4. OXYCODONE [Concomitant]
  5. FLONASE [Concomitant]
  6. METHADONE [Concomitant]
  7. EFFEXOR [Concomitant]
  8. VANCOMYCIN HCL [Suspect]
     Indication: STAPHYLOCOCCAL INFECTION
     Dosage: 1750MG Q12H IV RECENT
     Route: 042

REACTIONS (5)
  - RENAL FAILURE ACUTE [None]
  - HYPOTENSION [None]
  - CONTRAST MEDIA REACTION [None]
  - RENAL TUBULAR NECROSIS [None]
  - TOXICITY TO VARIOUS AGENTS [None]
